FAERS Safety Report 10102073 (Version 1)
Quarter: 2014Q2

REPORT INFORMATION
  Report Type: Spontaneous
  Country: US (occurrence: None)
  Receive Date: 20140423
  Receipt Date: 20140423
  Transmission Date: 20141212
  Serious: Yes (Other)
  Sender: FDA-Public Use
  Company Number: None

PATIENT
  Age: 11 Year
  Sex: Male

DRUGS (1)
  1. ACTIMMUNE [Suspect]
     Indication: NEUTROPHIL FUNCTION DISORDER
     Route: 058
     Dates: start: 20131120, end: 20140301

REACTIONS (1)
  - Drug ineffective [None]
